FAERS Safety Report 5341318-8 (Version None)
Quarter: 2007Q2

REPORT INFORMATION
  Report Type: 
  Country: None (occurrence: None)
  Receive Date: 20070523
  Receipt Date: 20070509
  Transmission Date: 20071010
  Serious: Yes (Hospitalization)
  Sender: FDA-Public Use
  Company Number: THYM-10850

PATIENT
  Age: 45 Year
  Sex: Female
  Weight: 70 kg

DRUGS (18)
  1. THYMOGLOBULIN [Suspect]
     Indication: LIVER TRANSPLANT
     Dosage: 108 MG QD IV
     Route: 042
     Dates: start: 20051231, end: 20060103
  2. CELLCEPT [Concomitant]
  3. PEPCID [Concomitant]
  4. ACYCLOVIR [Concomitant]
  5. TACROLIMUS [Concomitant]
  6. INSULIN ASPART [Concomitant]
  7. INSULIN GLARGINE [Concomitant]
  8. ANZEMET [Concomitant]
  9. MYCOSTATIN [Concomitant]
  10. BENADRYL [Concomitant]
  11. HEPARIN [Concomitant]
  12. NYSTATIN [Concomitant]
  13. VANCOMYCIN HCL [Concomitant]
  14. IMIPENEM CILASTATIN [Concomitant]
  15. PHENERGAN HCL [Concomitant]
  16. DIFLUCAN [Concomitant]
  17. SODIUM CHLORIDE [Concomitant]
  18. PREDNISONE TAB [Concomitant]

REACTIONS (11)
  - AZOTAEMIA [None]
  - CELLULITIS [None]
  - INDURATION [None]
  - LEUKOCYTOSIS [None]
  - OEDEMA [None]
  - PARAESTHESIA [None]
  - PRURITUS [None]
  - RENAL FAILURE ACUTE [None]
  - SERUM SICKNESS [None]
  - SKIN WARM [None]
  - SOFT TISSUE DISORDER [None]
